FAERS Safety Report 21961603 (Version 1)
Quarter: 2023Q1

REPORT INFORMATION
  Report Type: Report from Study
  Country: DO (occurrence: DO)
  Receive Date: 20230207
  Receipt Date: 20230207
  Transmission Date: 20230417
  Serious: Yes (Hospitalization, Other)
  Sender: FDA-Public Use
  Company Number: DO-002147023-NVSC2023DO013657

PATIENT
  Age: 85 Year
  Sex: Female
  Weight: 58.96 kg

DRUGS (3)
  1. HYDROCHLOROTHIAZIDE\VALSARTAN [Suspect]
     Active Substance: HYDROCHLOROTHIAZIDE\VALSARTAN
     Indication: Hypertension
     Dosage: UNK UNK, QD (320/25 MG)
     Route: 048
     Dates: start: 2022, end: 202211
  2. HYDROCHLOROTHIAZIDE\VALSARTAN [Suspect]
     Active Substance: HYDROCHLOROTHIAZIDE\VALSARTAN
     Dosage: 1 DOSAGE FORM, QD, (160/12.5 MG)
     Route: 048
     Dates: start: 202211
  3. JANUMET [Concomitant]
     Active Substance: METFORMIN HYDROCHLORIDE\SITAGLIPTIN PHOSPHATE
     Indication: Glucose tolerance impaired
     Dosage: UNK
     Route: 065

REACTIONS (3)
  - Aphonia [Recovered/Resolved]
  - Syncope [Recovered/Resolved]
  - Pain in extremity [Not Recovered/Not Resolved]

NARRATIVE: CASE EVENT DATE: 20220804
